FAERS Safety Report 9877000 (Version 2)
Quarter: 2014Q1

REPORT INFORMATION
  Report Type: Spontaneous
  Country: US (occurrence: None)
  Receive Date: 20140205
  Receipt Date: 20140207
  Transmission Date: 20141002
  Serious: Yes (Hospitalization)
  Sender: FDA-Public Use
  Company Number: DL2014-0065

PATIENT
  Age: 25 Year
  Sex: Female

DRUGS (3)
  1. MIFEPRISTONE [Suspect]
     Indication: ABORTION INDUCED
     Route: 048
     Dates: start: 20131114
  2. MISOPROSTOL [Suspect]
     Route: 002
     Dates: start: 20131115
  3. DOXYCYCLINE [Concomitant]

REACTIONS (9)
  - Haemorrhage [None]
  - Asthenia [None]
  - Tremor [None]
  - Musculoskeletal stiffness [None]
  - Malaise [None]
  - Peptostreptococcus test positive [None]
  - Endometritis [None]
  - Endometrial hypertrophy [None]
  - Pyrexia [None]
